FAERS Safety Report 8364653-8 (Version None)
Quarter: 2012Q2

REPORT INFORMATION
  Report Type: 
  Country: None (occurrence: None)
  Receive Date: 20120516
  Receipt Date: 20120510
  Transmission Date: 20120825
  Serious: Yes (Hospitalization, Other)
  Sender: FDA-Public Use
  Company Number: US-AMGEN-USASP2011060676

PATIENT
  Age: 56 Year
  Sex: Female
  Weight: 66 kg

DRUGS (3)
  1. MORPHINE [Concomitant]
     Dosage: UNK
  2. ENBREL [Suspect]
     Indication: RHEUMATOID ARTHRITIS
     Dosage: UNK
     Dates: start: 20040101
  3. ENBREL [Suspect]
     Dosage: 50 MG, QWK
     Dates: start: 20020101

REACTIONS (12)
  - OEDEMA PERIPHERAL [None]
  - UPPER RESPIRATORY TRACT INFECTION [None]
  - INJECTION SITE REACTION [None]
  - PAIN IN EXTREMITY [None]
  - INJECTION SITE PRURITUS [None]
  - INJECTION SITE SWELLING [None]
  - CHONDROPATHY [None]
  - FOOT OPERATION [None]
  - SINUSITIS [None]
  - INJECTION SITE ERYTHEMA [None]
  - FINGER DEFORMITY [None]
  - NASOPHARYNGITIS [None]
